FAERS Safety Report 12330920 (Version 1)
Quarter: 2016Q2

REPORT INFORMATION
  Report Type: Spontaneous
  Country: JP (occurrence: JP)
  Receive Date: 20160504
  Receipt Date: 20160504
  Transmission Date: 20160815
  Serious: Yes (Death, Other)
  Sender: FDA-Public Use
  Company Number: JP-STRIDES ARCOLAB LIMITED-2016SP002744

PATIENT

DRUGS (4)
  1. MYCOPHENOLATE MOFETIL. [Concomitant]
     Active Substance: MYCOPHENOLATE MOFETIL
     Indication: LIVER TRANSPLANT
     Dosage: UNK
     Route: 065
  2. TACROLIMUS. [Suspect]
     Active Substance: TACROLIMUS
     Indication: IMMUNOSUPPRESSION
     Dosage: UNK
     Route: 065
  3. CORTICOSTEROIDS [Suspect]
     Active Substance: CORTICOSTEROID NOS
     Indication: IMMUNOSUPPRESSION
  4. RITUXIMAB [Concomitant]
     Active Substance: RITUXIMAB
     Indication: LIVER TRANSPLANT
     Dosage: UNK
     Route: 065

REACTIONS (12)
  - Cardiogenic shock [Fatal]
  - Resorption bone increased [Not Recovered/Not Resolved]
  - Calcification metastatic [Not Recovered/Not Resolved]
  - Hepatic failure [Fatal]
  - Cardiac arrest [Fatal]
  - Hepatic necrosis [Not Recovered/Not Resolved]
  - Cardiac failure [Fatal]
  - Myocardial calcification [Not Recovered/Not Resolved]
  - Ventricular tachycardia [Not Recovered/Not Resolved]
  - Hepatic infarction [Not Recovered/Not Resolved]
  - Ischaemic hepatitis [None]
  - Hypercalcaemia [Not Recovered/Not Resolved]
